FAERS Safety Report 5786086-0 (Version None)
Quarter: 2008Q2

REPORT INFORMATION
  Report Type: 
  Country: None (occurrence: None)
  Receive Date: 20080624
  Receipt Date: 20080618
  Transmission Date: 20081010
  Serious: Yes (Other)
  Sender: FDA-Public Use
  Company Number: GB-ALLERGAN-0807557US

PATIENT
  Sex: Female

DRUGS (3)
  1. BRIMONIDINE UNK [Suspect]
     Indication: DRUG USE FOR UNKNOWN INDICATION
     Route: 047
  2. TIMOLOL MALEATE SOL UNSPECIFID [Suspect]
     Indication: INTRAOCULAR PRESSURE INCREASED
     Route: 047
  3. LATANOPROST [Suspect]
     Indication: DRUG USE FOR UNKNOWN INDICATION
     Route: 047

REACTIONS (3)
  - DRUG INEFFECTIVE [None]
  - IRIS ADHESIONS [None]
  - VITREOUS HAEMORRHAGE [None]
